FAERS Safety Report 20208227 (Version 1)
Quarter: 2021Q4

REPORT INFORMATION
  Report Type: Spontaneous
  Country: JP (occurrence: JP)
  Receive Date: 20211220
  Receipt Date: 20211220
  Transmission Date: 20220303
  Serious: Yes (Congenital Anomaly, Other)
  Sender: FDA-Public Use
  Company Number: JP-GLAXOSMITHKLINE-JP2021GSK254476

PATIENT
  Sex: Female

DRUGS (2)
  1. VALACYCLOVIR [Suspect]
     Active Substance: VALACYCLOVIR HYDROCHLORIDE
     Indication: Prophylaxis
     Dosage: UNK
     Route: 064
  2. VITAMINS [Suspect]
     Active Substance: VITAMINS
     Indication: Prophylaxis
     Dosage: UNK
     Route: 064

REACTIONS (5)
  - Skin lesion [Unknown]
  - Congenital midline defect [Unknown]
  - Aplasia cutis congenita [Unknown]
  - Foetal exposure during pregnancy [Unknown]
  - Live birth [Unknown]
